FAERS Safety Report 9582011 (Version 1)
Quarter: 2013Q4

REPORT INFORMATION
  Report Type: Spontaneous
  Country: PR (occurrence: PR)
  Receive Date: 20131002
  Receipt Date: 20131002
  Transmission Date: 20140711
  Serious: Yes (Death, Hospitalization, Other)
  Sender: FDA-Public Use
  Company Number: PR-GILEAD-2013-0084278

PATIENT
  Age: 38 Year
  Sex: Female

DRUGS (2)
  1. TRUVADA [Suspect]
     Indication: HIV INFECTION
     Dosage: UNK
     Dates: start: 2013
  2. RALTEGRAVIR [Concomitant]
     Indication: HIV INFECTION
     Dosage: UNK
     Dates: start: 2013

REACTIONS (1)
  - Respiratory distress [Fatal]
